FAERS Safety Report 8261348-6 (Version None)
Quarter: 2012Q2

REPORT INFORMATION
  Report Type: 
  Country: None (occurrence: None)
  Receive Date: 20120405
  Receipt Date: 20120330
  Transmission Date: 20120825
  Serious: Yes (Other)
  Sender: FDA-Public Use
  Company Number: US-PFIZER INC-2012066206

PATIENT
  Sex: Male

DRUGS (7)
  1. NITROGLYCERIN [Interacting]
     Indication: CARDIAC MURMUR
     Dosage: ONCE A WEEK
     Route: 060
     Dates: start: 20090101, end: 20090101
  2. HYDRALAZINE [Concomitant]
  3. VIAGRA [Suspect]
     Indication: ERECTILE DYSFUNCTION
     Dosage: 1 TAB PRN
     Route: 048
     Dates: start: 20090101, end: 20090101
  4. FUROSEMIDE [Concomitant]
     Indication: RENAL DISORDER
     Dosage: UNK
     Dates: start: 20040101
  5. NORVASC [Concomitant]
  6. PREDNISONE [Concomitant]
     Indication: RHEUMATOID ARTHRITIS
     Dosage: UNK
     Dates: start: 20030101
  7. METOPROLOL [Concomitant]
     Indication: HYPERTENSION
     Dosage: 100 MG, DAILY
     Route: 048
     Dates: start: 20040101

REACTIONS (9)
  - DRUG INTERACTION [None]
  - VISUAL BRIGHTNESS [None]
  - VISUAL IMPAIRMENT [None]
  - DRUG INEFFECTIVE [None]
  - HEADACHE [None]
  - CHROMATOPSIA [None]
  - LOSS OF CONSCIOUSNESS [None]
  - DIZZINESS [None]
  - VISION BLURRED [None]
